FAERS Safety Report 4766992-6 (Version None)
Quarter: 2005Q3

REPORT INFORMATION
  Report Type: 
  Country: None (occurrence: None)
  Receive Date: 20050908
  Receipt Date: 20050830
  Transmission Date: 20060218
  Serious: Yes (Hospitalization)
  Sender: FDA-Public Use
  Company Number: 2005-08-1942

PATIENT
  Age: 49 Year
  Sex: Male

DRUGS (2)
  1. AERIUS (DESLORATADINE) TABLET [Suspect]
     Indication: RHINITIS ALLERGIC
     Dosage: 1 TAB 5 MG QD ORAL
     Route: 048
     Dates: start: 20050820, end: 20050823
  2. CLARITIN [Suspect]
     Dosage: ORAL
     Route: 048
     Dates: end: 20050801

REACTIONS (7)
  - BACK PAIN [None]
  - BREATH SOUNDS ABNORMAL [None]
  - CHEST PAIN [None]
  - DRUG INEFFECTIVE [None]
  - EMPHYSEMA [None]
  - MUSCULOSKELETAL PAIN [None]
  - NAUSEA [None]
